FAERS Safety Report 6931337-X (Version None)
Quarter: 2010Q3

REPORT INFORMATION
  Report Type: 
  Country: None (occurrence: None)
  Receive Date: 20100816
  Receipt Date: 20100810
  Transmission Date: 20110219
  Serious: Yes (Other)
  Sender: FDA-Public Use
  Company Number: UKP10000088

PATIENT
  Age: 68 Year
  Sex: Female

DRUGS (8)
  1. ACTONEL [Suspect]
     Indication: OSTEOPENIA
     Dosage: 35 MG, 1/WEEK, ORAL
     Route: 048
  2. CALCICHEW-D3 (CALCIUM CARBONATE, COLCALCIFEROL) [Suspect]
     Indication: OSTEOPENIA
     Dosage: 2/DAY, ORAL
     Route: 048
  3. RITUXAN [Suspect]
     Indication: RHEUMATOID ARTHRITIS
     Dosage: 1000 MG, INJECTION NOS
     Dates: start: 20090821, end: 20090904
  4. ATORVASTATIN CALCIUM [Concomitant]
  5. BENDROFLUAZIDE (BENDROFLUMETHIAZIDE) [Concomitant]
  6. IRBESARTAN [Concomitant]
  7. MELOXICAM [Concomitant]
  8. PROZAC [Concomitant]

REACTIONS (1)
  - BREAST CANCER [None]
